FAERS Safety Report 12104259 (Version 1)
Quarter: 2016Q1

REPORT INFORMATION
  Report Type: Spontaneous
  Country: US (occurrence: US)
  Receive Date: 20160223
  Receipt Date: 20160223
  Transmission Date: 20160526
  Serious: No
  Sender: FDA-Public Use
  Company Number: US-BAYER-2016-031618

PATIENT
  Age: 44 Year
  Sex: Female
  Weight: 63.39 kg

DRUGS (1)
  1. ALEVE PM [Suspect]
     Active Substance: DIPHENHYDRAMINE HYDROCHLORIDE\NAPROXEN SODIUM
     Indication: SLEEP DISORDER THERAPY
     Dosage: 0.5-1 DF, UNK
     Route: 048
     Dates: start: 2016, end: 20160216

REACTIONS (7)
  - Nightmare [Recovered/Resolved]
  - Initial insomnia [Recovered/Resolved]
  - Product use issue [None]
  - Nightmare [None]
  - Product use issue [None]
  - Product use issue [None]
  - Off label use [None]

NARRATIVE: CASE EVENT DATE: 2016
